FAERS Safety Report 6816571-1 (Version None)
Quarter: 2010Q3

REPORT INFORMATION
  Report Type: 
  Country: None (occurrence: None)
  Receive Date: 20100706
  Receipt Date: 20100622
  Transmission Date: 20110219
  Serious: Yes (Disabling)
  Sender: FDA-Public Use
  Company Number: GB-ELI_LILLY_AND_COMPANY-GB201006001218

PATIENT
  Age: 80 Year
  Sex: Female
  Weight: 69.4 kg

DRUGS (10)
  1. HUMULIN R [Suspect]
     Dosage: 30 IU, UNKNOWN
     Route: 058
     Dates: start: 20091120
  2. LANTUS [Concomitant]
     Dosage: 34 IU, UNK
     Route: 058
     Dates: start: 20100323
  3. LEVEMIR [Concomitant]
     Dosage: UNK, UNK
     Route: 058
     Dates: start: 20090825, end: 20091120
  4. ATENOLOL [Concomitant]
     Dosage: 25 MG, DAILY (1/D)
     Dates: start: 20100222
  5. BENDROFLUMETHIAZIDE [Concomitant]
     Indication: HYPERTENSION
     Dosage: 2.5 MG, DAILY (1/D)
  6. CETIRIZINE HCL [Concomitant]
     Indication: HYPERSENSITIVITY
     Dosage: 10 MG, DAILY (1/D)
     Dates: start: 20100222
  7. METFORMIN HCL [Concomitant]
     Indication: DIABETES MELLITUS
     Dosage: 500 MG, DAILY (1/D)
     Dates: start: 20100222
  8. PREDNISOLONE [Concomitant]
     Indication: POLYMYALGIA RHEUMATICA
     Dosage: 5 MG, DAILY (1/D)
     Dates: start: 20100222
  9. RAMIPRIL [Concomitant]
     Indication: HYPERTENSION
     Dosage: 10 MG, DAILY (1/D)
     Dates: start: 20100222
  10. SIMVASTATIN [Concomitant]
     Indication: DIABETES MELLITUS
     Dosage: 40 MG, DAILY (1/D)
     Dates: start: 20100222

REACTIONS (2)
  - INJECTION SITE PRURITUS [None]
  - PRURITUS GENERALISED [None]
